FAERS Safety Report 4558497-2 (Version None)
Quarter: 2005Q1

REPORT INFORMATION
  Report Type: 
  Country: None (occurrence: None)
  Receive Date: 20050121
  Receipt Date: 20041008
  Transmission Date: 20050727
  Serious: Yes (Disabling, Other)
  Sender: FDA-Public Use
  Company Number: US-MERCK-0410USA01457

PATIENT
  Age: 69 Year
  Sex: Female
  Weight: 74 kg

DRUGS (7)
  1. VIOXX [Suspect]
     Indication: PAIN
     Route: 048
     Dates: start: 20011115, end: 20041013
  2. VIOXX [Suspect]
     Indication: OSTEOARTHRITIS
     Route: 048
     Dates: start: 20011115, end: 20041013
  3. PREDNISONE [Concomitant]
     Indication: HAEMOLYTIC ANAEMIA
     Route: 048
     Dates: start: 20020803
  4. LEVOXYL [Concomitant]
     Indication: HYPOTHYROIDISM
     Route: 048
     Dates: start: 19980724
  5. NORVASC [Concomitant]
     Indication: HYPERTENSION
     Route: 048
     Dates: start: 20031119
  6. PREMARIN [Concomitant]
     Indication: MENOPAUSE
     Route: 048
  7. PREMARIN [Concomitant]
     Indication: HOT FLUSH
     Route: 048

REACTIONS (1)
  - SPLENIC INFARCTION [None]
